FAERS Safety Report 24373613 (Version 1)
Quarter: 2024Q3

REPORT INFORMATION
  Report Type: Spontaneous
  Country: US (occurrence: US)
  Receive Date: 20240927
  Receipt Date: 20240927
  Transmission Date: 20241017
  Serious: No
  Sender: VIVUS
  Company Number: US-VIVUS LLC-2023V1001110

PATIENT
  Age: 63 Year
  Sex: Female
  Weight: 77.18 kg

DRUGS (1)
  1. QSYMIA [Suspect]
     Active Substance: PHENTERMINE HYDROCHLORIDE\TOPIRAMATE
     Indication: Product used for unknown indication
     Route: 048
     Dates: start: 20230917, end: 20230917

REACTIONS (11)
  - Photopsia [Recovered/Resolved]
  - Lagophthalmos [Recovered/Resolved]
  - Eye oedema [Recovered/Resolved]
  - Mydriasis [Recovered/Resolved]
  - Intraocular pressure increased [Recovered/Resolved]
  - Headache [Recovered/Resolved]
  - Eye pain [Recovered/Resolved]
  - Visual impairment [Recovered/Resolved]
  - Dizziness [Recovered/Resolved]
  - Vision blurred [Recovered/Resolved]
  - Insomnia [Recovered/Resolved]

NARRATIVE: CASE EVENT DATE: 20230917
